FAERS Safety Report 6988121-0 (Version None)
Quarter: 2010Q3

REPORT INFORMATION
  Report Type: 
  Country: None (occurrence: None)
  Receive Date: 20100916
  Receipt Date: 20100909
  Transmission Date: 20110219
  Serious: Yes (Hospitalization)
  Sender: FDA-Public Use
  Company Number: B0674194A

PATIENT
  Sex: Male
  Weight: 2.26 kg

DRUGS (8)
  1. RELENZA [Suspect]
     Indication: INFLUENZA
     Dosage: 20MG PER DAY
     Dates: start: 20100127, end: 20100131
  2. ACETAMINOPHEN [Concomitant]
     Dates: start: 20100127, end: 20100131
  3. LAXOBERON [Concomitant]
     Dates: start: 20100629
  4. VOLTAREN [Concomitant]
     Dates: start: 20100629
  5. DASEN [Concomitant]
     Dosage: 300MG PER DAY
     Dates: start: 20100630, end: 20100706
  6. UNKNOWN DRUG [Concomitant]
     Dosage: 3IUAX PER DAY
     Dates: start: 20100630, end: 20100706
  7. CEFZON [Concomitant]
     Dosage: 300MG PER DAY
     Dates: start: 20100630, end: 20100706
  8. SELBEX [Concomitant]
     Dosage: 150MG PER DAY
     Dates: start: 20100630, end: 20100706

REACTIONS (2)
  - DRUG EXPOSURE DURING PREGNANCY [None]
  - NEONATAL RESPIRATORY FAILURE [None]
